FAERS Safety Report 6755945-4 (Version None)
Quarter: 2010Q2

REPORT INFORMATION
  Report Type: 
  Country: None (occurrence: None)
  Receive Date: 20100604
  Receipt Date: 20100521
  Transmission Date: 20101027
  Serious: Yes (Life-Threatening, Other)
  Sender: FDA-Public Use
  Company Number: PHEH2010US03218

PATIENT
  Sex: Female
  Weight: 69.388 kg

DRUGS (2)
  1. EXJADE [Suspect]
     Indication: IRON OVERLOAD
     Dosage: 1500 MG DAILY
     Route: 048
     Dates: start: 20090501, end: 20091201
  2. EXJADE [Suspect]
     Dosage: 500 MG, BID
     Route: 048
     Dates: start: 20090501, end: 20091201

REACTIONS (2)
  - CONCOMITANT DISEASE PROGRESSION [None]
  - DIARRHOEA [None]
